FAERS Safety Report 17400864 (Version 1)
Quarter: 2020Q1

REPORT INFORMATION
  Report Type: Spontaneous
  Country: US (occurrence: US)
  Receive Date: 20200208
  Receipt Date: 20200208
  Transmission Date: 20200409
  Serious: Yes (Hospitalization)
  Sender: FDA-Public Use
  Company Number: None

PATIENT
  Age: 66 Year
  Sex: Female
  Weight: 51.75 kg

DRUGS (2)
  1. RITUXAN [Suspect]
     Active Substance: RITUXIMAB
     Indication: RHEUMATOID ARTHRITIS
     Dosage: ?          OTHER FREQUENCY:EVERY 6 MONTHS;?
     Route: 042
     Dates: start: 20170612, end: 20170612
  2. BUPROPION. [Concomitant]
     Active Substance: BUPROPION

REACTIONS (3)
  - Diarrhoea [None]
  - Large intestinal ulcer [None]
  - Ileal ulcer [None]

NARRATIVE: CASE EVENT DATE: 20170820
